FAERS Safety Report 10143245 (Version 1)
Quarter: 2014Q2

REPORT INFORMATION
  Report Type: Spontaneous
  Country: US (occurrence: None)
  Receive Date: 20140429
  Receipt Date: 20140429
  Transmission Date: 20141212
  Serious: Yes (Disabling)
  Sender: FDA-Public Use
  Company Number: None

PATIENT
  Age: 72 Year
  Sex: Female

DRUGS (2)
  1. LIDOCAINE [Suspect]
     Indication: AUTONOMIC NEUROPATHY
     Dosage: 2 ONCE DAILY MIDDLE OF FEET TO TOES
     Dates: start: 20131001, end: 20140428
  2. LIDOCAINE [Suspect]
     Indication: PAIN IN EXTREMITY
     Dosage: 2 ONCE DAILY MIDDLE OF FEET TO TOES
     Dates: start: 20131001, end: 20140428

REACTIONS (4)
  - Product substitution issue [None]
  - Product physical consistency issue [None]
  - Drug ineffective [None]
  - Economic problem [None]
